FAERS Safety Report 11264430 (Version 1)
Quarter: 2015Q3

REPORT INFORMATION
  Report Type: Spontaneous
  Country: US (occurrence: None)
  Receive Date: 20150710
  Receipt Date: 20150710
  Transmission Date: 20151125
  Serious: No
  Sender: FDA-Public Use
  Company Number: None

PATIENT
  Age: 36 Year
  Sex: Female

DRUGS (12)
  1. TYLENOL [Concomitant]
     Active Substance: ACETAMINOPHEN
  2. AMPYRA [Suspect]
     Active Substance: DALFAMPRIDINE
     Indication: MULTIPLE SCLEROSIS
     Dosage: 10MG, Q12H, ORAL
     Route: 048
     Dates: start: 201010
  3. OXYBUTYNIN (DITROPAN XL) [Concomitant]
  4. MODAFLINIL (PROVIGIL) [Concomitant]
  5. NATALIZUMAB (TYSABRI) [Concomitant]
  6. ACATAMINOPHEN-CODEINE (TYLENOL #3) [Concomitant]
  7. LEVOTHYROXINE (LEVOTHROID/SYNTHROID) [Concomitant]
  8. XIN B (POLYSPORIN) [Concomitant]
  9. LEVONORGESTREL-ETHINYL ESTRADIOL (AVIANE) [Concomitant]
  10. CLOTRIMAZOLE (LOTRIMIN AF/MYCELEX) [Concomitant]
  11. HYDROCORTISONE. [Concomitant]
     Active Substance: HYDROCORTISONE
  12. BACITRACIN-POLYMY [Concomitant]

REACTIONS (3)
  - Vaginal discharge [None]
  - Human papilloma virus test positive [None]
  - Fungal infection [None]

NARRATIVE: CASE EVENT DATE: 20150630
